FAERS Safety Report 18599342 (Version 1)
Quarter: 2020Q4

REPORT INFORMATION
  Report Type: Spontaneous
  Country: US (occurrence: US)
  Receive Date: 20201209
  Receipt Date: 20201209
  Transmission Date: 20210114
  Serious: Yes (Hospitalization)
  Sender: FDA-Public Use
  Company Number: None

PATIENT
  Sex: Female

DRUGS (8)
  1. AMLODIPINE [Concomitant]
     Active Substance: AMLODIPINE BESYLATE
  2. BUDESONIDE. [Concomitant]
     Active Substance: BUDESONIDE
  3. ADCIRCA [Suspect]
     Active Substance: TADALAFIL
     Indication: PULMONARY HYPERTENSION
     Route: 048
     Dates: start: 20140429
  4. BIOTIN [Concomitant]
     Active Substance: BIOTIN
  5. LACTULOSE. [Concomitant]
     Active Substance: LACTULOSE
  6. FOLIC ACID. [Concomitant]
     Active Substance: FOLIC ACID
  7. JAKAFI(RETAIL) [Concomitant]
  8. FUROSEMIDE. [Concomitant]
     Active Substance: FUROSEMIDE

REACTIONS (1)
  - Hospitalisation [None]
